FAERS Safety Report 16787646 (Version 2)
Quarter: 2019Q4

REPORT INFORMATION
  Report Type: Spontaneous
  Country: US (occurrence: US)
  Receive Date: 20190909
  Receipt Date: 20191126
  Transmission Date: 20200122
  Serious: Yes (Other)
  Sender: FDA-Public Use
  Company Number: US-JNJFOC-20190903313

PATIENT
  Sex: Female

DRUGS (3)
  1. STELARA [Suspect]
     Active Substance: USTEKINUMAB
     Indication: PRODUCT USED FOR UNKNOWN INDICATION
     Route: 042
     Dates: start: 20190611
  2. STELARA [Suspect]
     Active Substance: USTEKINUMAB
     Route: 058
  3. BETAXOLOL. [Concomitant]
     Active Substance: BETAXOLOL
     Indication: MITRAL VALVE PROLAPSE

REACTIONS (2)
  - Crohn^s disease [Not Recovered/Not Resolved]
  - Product storage error [Unknown]
